FAERS Safety Report 6941986-0 (Version None)
Quarter: 2010Q3

REPORT INFORMATION
  Report Type: 
  Country: None (occurrence: None)
  Receive Date: 20100826
  Receipt Date: 20100813
  Transmission Date: 20110219
  Serious: Yes (Death, Hospitalization, Other)
  Sender: FDA-Public Use
  Company Number: PHEH2009US00719

PATIENT
  Sex: Female

DRUGS (64)
  1. ZOMETA [Suspect]
     Dosage: 4 MG, QMO
     Dates: end: 20050926
  2. AREDIA [Suspect]
  3. CHEMOTHERAPEUTICS NOS [Concomitant]
  4. FOSAMAX [Concomitant]
     Dosage: 70 MG, QW
  5. NORVASC [Concomitant]
     Dosage: 5 MG, QD
  6. AVAPRO [Concomitant]
     Dosage: 300 MG, QD
  7. SYNTHROID [Concomitant]
     Dosage: 0.175 MG, QD
  8. ASPIRIN [Concomitant]
     Dosage: 81 MG, QD
  9. LIPITOR [Concomitant]
     Dosage: 20 MG, QD
  10. ARIMIDEX [Concomitant]
     Dosage: 1 MG, QD
  11. TAXOTERE [Concomitant]
     Dosage: UNK
  12. COUMADIN [Concomitant]
  13. LOVENOX [Concomitant]
  14. RADIATION THERAPY [Concomitant]
  15. PREVACID [Concomitant]
  16. ACETAMINOPHEN [Concomitant]
  17. LASIX [Concomitant]
  18. DECADRON [Concomitant]
  19. NAPROSYN [Concomitant]
  20. BENADRYL ^ACHE^ [Concomitant]
  21. TAGAMET [Concomitant]
  22. KYTRIL [Concomitant]
  23. UNASYN [Concomitant]
  24. DEPO-MEDROL + LIDOCAINE [Concomitant]
  25. XELODA [Concomitant]
  26. PERIDEX [Concomitant]
  27. NYSTATIN [Concomitant]
  28. GEMZAR [Concomitant]
  29. TOBRAMYCIN [Concomitant]
  30. CEFTIN [Concomitant]
  31. DOXIL [Concomitant]
  32. MEGACE [Concomitant]
  33. DILANTIN                                /CAN/ [Concomitant]
  34. KEPPRA [Concomitant]
  35. CYMBALTA [Concomitant]
  36. NAVELBINE [Concomitant]
  37. LIDOCAINE [Concomitant]
  38. LAMICTAL [Concomitant]
  39. DURAGESIC-100 [Concomitant]
  40. MIACALCIN [Concomitant]
  41. ABRAXANE [Concomitant]
  42. MARCAINE [Concomitant]
  43. ROCEPHIN [Concomitant]
  44. ZITHROMAX [Concomitant]
  45. ROXANOL [Concomitant]
  46. VIOXX [Concomitant]
  47. PREDNISONE [Concomitant]
  48. THEO-DUR [Concomitant]
  49. LEVAQUIN [Concomitant]
     Dosage: UNK
     Dates: start: 20071101, end: 20071101
  50. ZOSYN [Concomitant]
     Dosage: UNK
  51. DETROL [Concomitant]
     Dosage: UNK
  52. FLAGYL [Concomitant]
     Dosage: UNK
  53. LIDODERM [Concomitant]
     Dosage: UNK
  54. PROVIGIL [Concomitant]
     Dosage: UNK
  55. PERCOCET [Concomitant]
     Dosage: UNK
  56. ATIVAN [Concomitant]
     Dosage: UNK
  57. RISPERDAL [Concomitant]
     Dosage: UNK
  58. HALDOL [Concomitant]
     Dosage: UNK
  59. ERYTHROMYCIN [Concomitant]
     Dosage: UNK
  60. RISPERIDONE [Concomitant]
     Dosage: 0.5 MG / TWICE DAILY
     Route: 048
  61. METOPROLOL [Concomitant]
     Dosage: 25 MG/ TWICE DAILY
     Route: 048
  62. GUAIFENESIN DM [Concomitant]
     Dosage: 10-100MG/5ML / EVERY 4 HRS PRN
  63. METRONIDAZOLE [Concomitant]
     Dosage: UNK
  64. SENNA [Concomitant]
     Dosage: UNK

REACTIONS (83)
  - ANXIETY [None]
  - ASTHENIA [None]
  - ATELECTASIS [None]
  - BACK PAIN [None]
  - BLINDNESS UNILATERAL [None]
  - BONE DISORDER [None]
  - BRAIN SCAN ABNORMAL [None]
  - BREAST LUMP REMOVAL [None]
  - BURSITIS [None]
  - CANDIDIASIS [None]
  - CARDIOMEGALY [None]
  - CELLULITIS [None]
  - CENTRAL VENOUS CATHETERISATION [None]
  - CERVICAL SPINAL STENOSIS [None]
  - CHOLECYSTECTOMY [None]
  - CHROMATOPSIA [None]
  - COLONIC POLYP [None]
  - CONFUSIONAL STATE [None]
  - CONJUNCTIVITIS [None]
  - CONSTIPATION [None]
  - CONVULSION [None]
  - COUGH [None]
  - CSF TEST ABNORMAL [None]
  - DEATH [None]
  - DEEP VEIN THROMBOSIS [None]
  - DELIRIUM [None]
  - DENTAL CARIES [None]
  - DEPRESSION [None]
  - DRY MOUTH [None]
  - DYSSTASIA [None]
  - EATING DISORDER SYMPTOM [None]
  - ELECTROENCEPHALOGRAM ABNORMAL [None]
  - EPISTAXIS [None]
  - FOOT DEFORMITY [None]
  - FOOT FRACTURE [None]
  - GAIT DISTURBANCE [None]
  - GINGIVAL EROSION [None]
  - HALLUCINATION [None]
  - HEADACHE [None]
  - HERPES ZOSTER [None]
  - HYPOXIA [None]
  - ISCHAEMIA [None]
  - LETHARGY [None]
  - LOSS OF CONSCIOUSNESS [None]
  - MASS [None]
  - MENISCUS LESION [None]
  - MENTAL STATUS CHANGES [None]
  - METASTASES TO BONE [None]
  - METASTASES TO LIVER [None]
  - MICTURITION URGENCY [None]
  - NAUSEA [None]
  - NECK PAIN [None]
  - NEUROPATHY PERIPHERAL [None]
  - OEDEMA PERIPHERAL [None]
  - ONYCHOMYCOSIS [None]
  - OSTEOARTHRITIS [None]
  - OSTEONECROSIS [None]
  - OSTEONECROSIS OF JAW [None]
  - OSTEOPOROSIS [None]
  - PAIN IN EXTREMITY [None]
  - PATHOLOGICAL FRACTURE [None]
  - PERICARDIAL EFFUSION [None]
  - PLEURAL EFFUSION [None]
  - PNEUMONIA [None]
  - POOR PERSONAL HYGIENE [None]
  - POSITIVE ROMBERGISM [None]
  - PYREXIA [None]
  - RADIUS FRACTURE [None]
  - RIB FRACTURE [None]
  - SWELLING [None]
  - SYNCOPE [None]
  - SYNOVIAL CYST [None]
  - SYNOVITIS [None]
  - THROMBOPHLEBITIS [None]
  - TOOTH DISORDER [None]
  - TOOTH EXTRACTION [None]
  - TOOTH LOSS [None]
  - TREMOR [None]
  - UMBILICAL HERNIA [None]
  - UMBILICAL HERNIA REPAIR [None]
  - UNRESPONSIVE TO STIMULI [None]
  - UTERINE LEIOMYOMA [None]
  - VEIN DISORDER [None]
